FAERS Safety Report 5141526-5 (Version None)
Quarter: 2006Q4

REPORT INFORMATION
  Report Type: 
  Country: None (occurrence: None)
  Receive Date: 20061030
  Receipt Date: 20061030
  Transmission Date: 20070319
  Serious: No
  Sender: FDA-Public Use
  Company Number: None

PATIENT
  Age: 27 Year
  Sex: Male
  Weight: 76.6579 kg

DRUGS (2)
  1. AVELOX [Suspect]
     Indication: CELLULITIS
     Dosage: 1 PILL 1 X A DAY PO
     Route: 048
     Dates: start: 20061019, end: 20061023
  2. AVELOX [Suspect]
     Indication: STAPHYLOCOCCAL INFECTION
     Dosage: 1 PILL 1 X A DAY PO
     Route: 048
     Dates: start: 20061019, end: 20061023

REACTIONS (4)
  - MUSCULAR WEAKNESS [None]
  - MYALGIA [None]
  - PAIN [None]
  - TENDON PAIN [None]
